FAERS Safety Report 9510672 (Version 1)
Quarter: 2013Q3

REPORT INFORMATION
  Report Type: Spontaneous
  Country: FR (occurrence: FR)
  Receive Date: 20130909
  Receipt Date: 20130909
  Transmission Date: 20140515
  Serious: Yes (Death)
  Sender: FDA-Public Use
  Company Number: FR-WATSON-2013-16015

PATIENT
  Age: 87 Year
  Sex: Male

DRUGS (13)
  1. FEVERALL (AMALLC) [Suspect]
     Indication: PAIN
     Dosage: 2 DF, TID
     Route: 048
     Dates: end: 201303
  2. FEVERALL (AMALLC) [Suspect]
     Dosage: 1 G, UNK
     Route: 042
     Dates: start: 20130317, end: 20130321
  3. PANTOPRAZOLE (UNKNOWN) [Suspect]
     Indication: PROPHYLAXIS
     Dosage: 1 DF, DAILY
     Route: 048
     Dates: end: 20130320
  4. ALFUZOSIN [Suspect]
     Indication: PRODUCT USED FOR UNKNOWN INDICATION
     Dosage: 1 DF, DAILY
     Route: 048
     Dates: end: 20130312
  5. ALLOPURINOL (UNKNOWN) [Suspect]
     Indication: PRODUCT USED FOR UNKNOWN INDICATION
     Dosage: 1 DF, DAILY
     Route: 048
     Dates: end: 20130312
  6. PERINDOPRIL (UNKNOWN) [Suspect]
     Indication: HYPERTENSION
     Dosage: 1 DF, DAILY
     Route: 048
     Dates: end: 20130318
  7. ZOLPIDEM (UNKNOWN) [Suspect]
     Indication: INSOMNIA
     Dosage: 0.5 DF, DAILY
     Route: 048
     Dates: end: 20130319
  8. FUROSEMIDE (UNKNOWN) [Suspect]
     Indication: HYPERTENSION
     Dosage: 1 DF, DAILY
     Route: 048
     Dates: end: 20130318
  9. FOLIC ACID (UNKNOWN) [Suspect]
     Indication: FOLATE DEFICIENCY
     Dosage: 1 DF, DAILY
     Route: 048
     Dates: end: 20130320
  10. AMIODARONE (UNKNOWN) [Suspect]
     Indication: ARRHYTHMIA
     Dosage: 1 DF, DAILY
     Route: 048
     Dates: end: 20130320
  11. ASPIRIN (UNKNOWN) [Suspect]
     Indication: PLATELET AGGREGATION INHIBITION
     Dosage: 1 DF, DAILY
     Route: 048
     Dates: end: 20130320
  12. LEVOTHYROXINE SODIUM (UNKNOWN) [Suspect]
     Indication: HYPOTHYROIDISM
     Dosage: 1 UNK, UNK
     Route: 048
     Dates: end: 20130320
  13. AUGMENTIN /00756801/ [Suspect]
     Indication: PRODUCT USED FOR UNKNOWN INDICATION
     Dosage: UNK
     Route: 065
     Dates: start: 20130313, end: 20130317

REACTIONS (3)
  - Hepatocellular injury [Fatal]
  - Hepatic enzyme increased [Fatal]
  - Analgesic drug level increased [Fatal]
